FAERS Safety Report 18776709 (Version 3)
Quarter: 2021Q1

REPORT INFORMATION
  Report Type: Spontaneous
  Country: US (occurrence: US)
  Receive Date: 20210122
  Receipt Date: 20210129
  Transmission Date: 20210419
  Serious: Yes (Hospitalization, Other)
  Sender: FDA-Public Use
  Company Number: US-PFIZER INC-2021032817

PATIENT
  Age: 28 Year
  Sex: Female

DRUGS (7)
  1. ONDANSETRON [Suspect]
     Active Substance: ONDANSETRON
     Indication: HYPEREMESIS GRAVIDARUM
     Dosage: UNK UNK, AS NEEDED
  2. OLANZAPINE. [Concomitant]
     Active Substance: OLANZAPINE
     Indication: MAJOR DEPRESSION
     Dosage: 20 MG, 1X/DAY
  3. PYRIDOXINE [Concomitant]
     Active Substance: PYRIDOXINE
     Indication: HYPEREMESIS GRAVIDARUM
     Dosage: 25 MG, 4X/DAY
  4. SERTRALINE [Concomitant]
     Active Substance: SERTRALINE HYDROCHLORIDE
     Indication: MAJOR DEPRESSION
     Dosage: 50 MG, 1X/DAY
  5. ONDANSETRON [Suspect]
     Active Substance: ONDANSETRON
     Dosage: 4 MG, AS NEEDED
  6. DOXYLAMINE SUCCINATE. [Concomitant]
     Active Substance: DOXYLAMINE SUCCINATE
     Indication: HYPEREMESIS GRAVIDARUM
     Dosage: 12.5 MG, 4X/DAY
  7. FAMOTIDINE. [Concomitant]
     Active Substance: FAMOTIDINE
     Indication: HYPEREMESIS GRAVIDARUM
     Dosage: 20 MG, 2X/DAY
     Route: 042

REACTIONS (3)
  - Maternal exposure during pregnancy [Recovering/Resolving]
  - Drug-induced liver injury [Recovering/Resolving]
  - Hypertransaminasaemia [Recovering/Resolving]
